FAERS Safety Report 7101292-0 (Version None)
Quarter: 2010Q4

REPORT INFORMATION
  Report Type: 
  Country: None (occurrence: None)
  Receive Date: 20101105
  Receipt Date: 20100420
  Transmission Date: 20110411
  Serious: Yes (Other)
  Sender: FDA-Public Use
  Company Number: DSA_43005_2010

PATIENT
  Sex: Male

DRUGS (2)
  1. ATIVAN [Suspect]
     Indication: ANXIETY
     Dosage: (1 MG TID ORAL)
     Route: 048
     Dates: start: 20091201
  2. ATIVAN [Suspect]
     Indication: INSOMNIA
     Dosage: (1 MG TID ORAL)
     Route: 048
     Dates: start: 20091201

REACTIONS (5)
  - ABDOMINAL DISTENSION [None]
  - ABDOMINAL PAIN UPPER [None]
  - DRUG DEPENDENCE [None]
  - FATIGUE [None]
  - FLATULENCE [None]
